FAERS Safety Report 8675525 (Version 2)
Quarter: 2012Q4

REPORT INFORMATION
  Report Type: 
  Country: US (occurrence: US)
  Receive Date: 20120720
  Receipt Date: 20121003
  Transmission Date: 20130627
  Serious: No
  Sender: FDA-Public Use
  Company Number: US-009507513-1207USA006022

PATIENT

DRUGS (1)
  1. PEGINTRON [Suspect]
     Dosage: 150 Microgram, qw
     Dates: start: 20120706

REACTIONS (4)
  - Underdose [Unknown]
  - Product quality issue [Unknown]
  - No adverse event [Unknown]
  - Drug dose omission [Unknown]
